FAERS Safety Report 6911478-3 (Version None)
Quarter: 2010Q3

REPORT INFORMATION
  Report Type: 
  Country: None (occurrence: None)
  Receive Date: 20100806
  Receipt Date: 20100726
  Transmission Date: 20110219
  Serious: Yes (Hospitalization, Disabling, Other)
  Sender: FDA-Public Use
  Company Number: US-BAYER-201012843NA

PATIENT
  Age: 31 Year
  Sex: Female
  Weight: 82 kg

DRUGS (4)
  1. YAZ [Suspect]
     Indication: PRODUCT USED FOR UNKNOWN INDICATION
     Route: 048
     Dates: start: 20051201, end: 20080301
  2. YASMIN [Suspect]
     Indication: PRODUCT USED FOR UNKNOWN INDICATION
     Route: 048
     Dates: start: 20051201, end: 20080301
  3. LOESTRIN 1.5/30 [Concomitant]
     Indication: PRODUCT USED FOR UNKNOWN INDICATION
     Dates: start: 20080312
  4. LORCET-HD [Concomitant]
     Indication: PRODUCT USED FOR UNKNOWN INDICATION
     Dates: start: 20080312

REACTIONS (6)
  - ARTERIAL THROMBOSIS LIMB [None]
  - GANGRENE [None]
  - HYPOAESTHESIA [None]
  - LOCALISED INFECTION [None]
  - PAIN IN EXTREMITY [None]
  - PERIPHERAL ISCHAEMIA [None]
